FAERS Safety Report 10541439 (Version 1)
Quarter: 2014Q4

REPORT INFORMATION
  Report Type: Spontaneous
  Country: US (occurrence: None)
  Receive Date: 20141010
  Receipt Date: 20141010
  Transmission Date: 20150529
  Serious: No
  Sender: FDA-Public Use
  Company Number: 163-POMAL-14055597

PATIENT
  Age: 71 Year
  Sex: Female

DRUGS (7)
  1. PEPCID [Concomitant]
     Active Substance: FAMOTIDINE
  2. ESCITALOPRAM OXALATE (ESCITALOPRAM OXALATE) [Concomitant]
     Active Substance: ESCITALOPRAM OXALATE
  3. SALINE MIST (SODIUM CHLORIDE) (SPRAY (NOT INHALATION)) [Concomitant]
  4. POMALYST [Suspect]
     Active Substance: POMALIDOMIDE
     Indication: PLASMA CELL MYELOMA
     Dosage: 3 MG, 21 IN 21 D
     Route: 048
     Dates: start: 20130924
  5. FENTANYL (FENTANYL) [Concomitant]
     Active Substance: FENTANYL
  6. OXYCODONE/ACETAMINOPHEN (OCYCOCET) [Concomitant]
  7. MONISTAT 7 SIMPLY CURE (MICONAZOLE NITRATE) [Concomitant]

REACTIONS (1)
  - Vulvovaginal mycotic infection [None]

NARRATIVE: CASE EVENT DATE: 20140524
